FAERS Safety Report 8216305-2 (Version None)
Quarter: 2012Q1

REPORT INFORMATION
  Report Type: 
  Country: None (occurrence: None)
  Receive Date: 20120316
  Receipt Date: 20120309
  Transmission Date: 20120608
  Serious: Yes (Other)
  Sender: FDA-Public Use
  Company Number: PHHY2010CA28501

PATIENT
  Sex: Female

DRUGS (1)
  1. SANDOSTATIN LAR [Suspect]
     Indication: CARCINOID TUMOUR
     Dosage: 20 MG, EVERY 4 WEEKS
     Route: 030
     Dates: start: 20091001

REACTIONS (10)
  - BLISTER [None]
  - BACK PAIN [None]
  - MYALGIA [None]
  - DYSGEUSIA [None]
  - THIRST [None]
  - FATIGUE [None]
  - HERPES ZOSTER [None]
  - PAIN IN EXTREMITY [None]
  - INCREASED UPPER AIRWAY SECRETION [None]
  - ABDOMINAL DISCOMFORT [None]
